FAERS Safety Report 18443542 (Version 1)
Quarter: 2020Q4

REPORT INFORMATION
  Report Type: Report from Study
  Country: US (occurrence: US)
  Receive Date: 20201029
  Receipt Date: 20201029
  Transmission Date: 20210114
  Serious: Yes (Other)
  Sender: FDA-Public Use
  Company Number: US-BAUSCH-BL-2020-031286

PATIENT
  Age: 47 Year
  Sex: Female

DRUGS (8)
  1. FORTAMET [Suspect]
     Active Substance: METFORMIN HYDROCHLORIDE
     Indication: PRODUCT USED FOR UNKNOWN INDICATION
     Dosage: EXTENDED-RELEASE TABLET
     Route: 048
     Dates: start: 20180831
  2. MODAFINIL. [Concomitant]
     Active Substance: MODAFINIL
     Indication: PRODUCT USED FOR UNKNOWN INDICATION
     Route: 048
  3. OMEPRAZOLE. [Concomitant]
     Active Substance: OMEPRAZOLE
     Indication: PRODUCT USED FOR UNKNOWN INDICATION
     Dosage: 1/2 HOUR BEFORE BREAKFAST (FOR 30 DAYS)
     Route: 048
  4. VITAMIN B12 [Concomitant]
     Active Substance: CYANOCOBALAMIN
     Indication: PRODUCT USED FOR UNKNOWN INDICATION
     Dosage: 1000 MCG/ML; INJECT 1 ML ONCE A MONTH FOR 6 MONTHS
     Route: 030
  5. LACTULOSE. [Concomitant]
     Active Substance: LACTULOSE
     Indication: PRODUCT USED FOR UNKNOWN INDICATION
     Dosage: 10GM/15 ML
     Route: 048
  6. BUPROPION HYDROCHLORIDE. [Suspect]
     Active Substance: BUPROPION HYDROCHLORIDE
     Indication: PRODUCT USED FOR UNKNOWN INDICATION
     Dosage: EXTENDED RELEASE
     Route: 048
     Dates: start: 20180831
  7. LEVOTHYROXINE. [Suspect]
     Active Substance: LEVOTHYROXINE
     Indication: PRODUCT USED FOR UNKNOWN INDICATION
     Route: 048
     Dates: start: 20180831
  8. LANTUS SOLOSTAR [Suspect]
     Active Substance: INSULIN GLARGINE
     Indication: PRODUCT USED FOR UNKNOWN INDICATION
     Dosage: 100 UNIT/ML (3 ML) INSULIN PEN; 16 UNITS DAILY
     Route: 065

REACTIONS (24)
  - Varices oesophageal [Unknown]
  - Portal hypertensive gastropathy [Unknown]
  - Oropharyngeal pain [Unknown]
  - Cholelithiasis [Unknown]
  - Abdominal pain [Unknown]
  - Wheezing [Recovered/Resolved]
  - Abdominal distension [Unknown]
  - Dizziness [Unknown]
  - Hypotension [Unknown]
  - Flatulence [Unknown]
  - Cough [Unknown]
  - Dyspnoea exertional [Recovered/Resolved]
  - Weight decreased [Unknown]
  - Hepatic cirrhosis [Unknown]
  - Ascites [Recovering/Resolving]
  - Muscle spasms [Recovering/Resolving]
  - Vomiting [Unknown]
  - Decreased appetite [Unknown]
  - Alopecia [Unknown]
  - Chest pain [Unknown]
  - Hepatic encephalopathy [Unknown]
  - Dysphonia [Unknown]
  - Splenomegaly [Unknown]
  - Nausea [Unknown]

NARRATIVE: CASE EVENT DATE: 20181024
